FAERS Safety Report 7916714-2 (Version None)
Quarter: 2011Q4

REPORT INFORMATION
  Report Type: 
  Country: None (occurrence: None)
  Receive Date: 20111114
  Receipt Date: 20111101
  Transmission Date: 20120403
  Serious: Yes (Hospitalization)
  Sender: FDA-Public Use
  Company Number: DSA_48130_2011

PATIENT
  Age: 13 Year
  Sex: Female

DRUGS (2)
  1. BUPROPION HCL [Suspect]
     Indication: PRODUCT USED FOR UNKNOWN INDICATION
     Dosage: (NOT THE PRESCRIBED AMOUNT ORAL)
     Route: 048
  2. BACLOFEN [Suspect]
     Indication: PRODUCT USED FOR UNKNOWN INDICATION
     Dosage: (NOT THE PRESCRIBED AMOUNT)

REACTIONS (7)
  - OVERDOSE [None]
  - RESPIRATORY ARREST [None]
  - HYPOTHERMIA [None]
  - POSTURING [None]
  - UNRESPONSIVE TO STIMULI [None]
  - BRADYCARDIA [None]
  - GRAND MAL CONVULSION [None]
